FAERS Safety Report 4480066-3 (Version None)
Quarter: 2004Q4

REPORT INFORMATION
  Report Type: 
  Country: None (occurrence: None)
  Receive Date: 20041018
  Receipt Date: 20041005
  Transmission Date: 20050328
  Serious: Yes (Other)
  Sender: FDA-Public Use
  Company Number: 2004075584

PATIENT
  Sex: Female

DRUGS (4)
  1. ZOLOFT [Suspect]
     Indication: ILL-DEFINED DISORDER
     Dosage: 100 MG
  2. GEMFIBROZIL [Concomitant]
     Indication: ILL-DEFINED DISORDER
     Dosage: 1200 MG (600 MG, 2 IN 1 D)
  3. LAMOTRIGINE [Suspect]
     Indication: ILL-DEFINED DISORDER
  4. CLOZAPINE [Suspect]
     Indication: ILL-DEFINED DISORDER
     Dosage: 225 MG

REACTIONS (3)
  - ANGLE CLOSURE GLAUCOMA [None]
  - DRUG INTERACTION [None]
  - EYE REDNESS [None]
